FAERS Safety Report 18269903 (Version 4)
Quarter: 2020Q4

REPORT INFORMATION
  Report Type: Spontaneous
  Country: BR (occurrence: BR)
  Receive Date: 20200916
  Receipt Date: 20201119
  Transmission Date: 20210113
  Serious: Yes (Other)
  Sender: FDA-Public Use
  Company Number: BR-AMGEN-BRASP2020149355

PATIENT
  Age: 66 Year
  Sex: Female

DRUGS (2)
  1. METHOTREXATE. [Concomitant]
     Active Substance: METHOTREXATE
     Dosage: 10 DOSAGE FORM, QWK (5 TABLETS ON MONDAYS AND 5 TABLETS ON TUESDAYS)
  2. ENBREL [Suspect]
     Active Substance: ETANERCEPT
     Indication: PRODUCT USED FOR UNKNOWN INDICATION
     Dosage: UNK UNK, QWK
     Route: 065

REACTIONS (16)
  - Disease recurrence [Unknown]
  - Spinal pain [Unknown]
  - Arthritis [Unknown]
  - Hypoaesthesia [Unknown]
  - Thyroid disorder [Unknown]
  - Nausea [Unknown]
  - Depression [Unknown]
  - Gait disturbance [Unknown]
  - Cardiac disorder [Unknown]
  - Arthralgia [Unknown]
  - Mobility decreased [Unknown]
  - Drug ineffective [Unknown]
  - Finger deformity [Unknown]
  - Chondropathy [Unknown]
  - Myocardial infarction [Unknown]
  - Headache [Unknown]

NARRATIVE: CASE EVENT DATE: 2019
